FAERS Safety Report 8398470-X (Version None)
Quarter: 2012Q2

REPORT INFORMATION
  Report Type: 
  Country: None (occurrence: None)
  Receive Date: 20120531
  Receipt Date: 20120524
  Transmission Date: 20120825
  Serious: Yes (Hospitalization)
  Sender: FDA-Public Use
  Company Number: CA-SANOFI-AVENTIS-2012SA028513

PATIENT
  Age: 66 Year
  Sex: Male

DRUGS (7)
  1. DOCETAXEL [Suspect]
     Route: 065
     Dates: start: 20120403
  2. THERAPEUTIC RADIOPHARMACEUTICALS [Suspect]
     Route: 065
     Dates: start: 20120403
  3. LEUPROLIDE ACETATE [Suspect]
     Route: 058
     Dates: start: 20111212
  4. MICARDIS HCT [Concomitant]
  5. ASPIRIN [Concomitant]
  6. DOCETAXEL [Suspect]
     Route: 065
  7. ATORVASTATIN CALCIUM [Concomitant]

REACTIONS (5)
  - PNEUMONIA [None]
  - DYSPNOEA [None]
  - PYREXIA [None]
  - PULMONARY EMBOLISM [None]
  - FATIGUE [None]
